FAERS Safety Report 18390942 (Version 2)
Quarter: 2020Q4

REPORT INFORMATION
  Report Type: Spontaneous
  Country: US (occurrence: US)
  Receive Date: 20201016
  Receipt Date: 20201113
  Transmission Date: 20210114
  Serious: Yes (Other)
  Sender: FDA-Public Use
  Company Number: US-ACCORD-205233

PATIENT
  Age: 30 Year
  Sex: Male

DRUGS (21)
  1. TACROLIMUS. [Suspect]
     Active Substance: TACROLIMUS
     Indication: IMMUNOSUPPRESSION
     Dosage: PO BID
     Route: 048
     Dates: start: 20140715, end: 20161108
  2. IPRATROPIUM/LEVOSALBUTAMOL [Concomitant]
     Dosage: BID
  3. PRAVASTATIN. [Concomitant]
     Active Substance: PRAVASTATIN
     Dosage: QHS
  4. ZOLPIDEM [Concomitant]
     Active Substance: ZOLPIDEM TARTRATE
     Dosage: QHS
  5. BUPROPION/BUPROPION HYDROCHLORIDE [Concomitant]
     Active Substance: BUPROPION HYDROCHLORIDE
     Dosage: BID
  6. MAGNESIUM HYDROXIDE. [Concomitant]
     Active Substance: MAGNESIUM HYDROXIDE
  7. LUBIPROSTONE [Concomitant]
     Active Substance: LUBIPROSTONE
  8. INSULIN [Concomitant]
     Active Substance: INSULIN NOS
  9. MYCOPHENOLIC ACID. [Concomitant]
     Active Substance: MYCOPHENOLIC ACID
     Indication: IMMUNOSUPPRESSION
     Dates: start: 20140715
  10. AZITHROMYCIN ANHYDROUS. [Concomitant]
     Active Substance: AZITHROMYCIN ANHYDROUS
     Dosage: M/W/F
  11. GABAPENTIN. [Concomitant]
     Active Substance: GABAPENTIN
     Dosage: TID
  12. ASCORBIC ACID/CALCIUM PANTOTHENATE/COLECALCIFEROL/CYANOCOBALAMIN/NICOTINAMIDE/PYRIDOXINE HYDROCHLORI [Concomitant]
  13. PANTOPRAZOLE [Concomitant]
     Active Substance: PANTOPRAZOLE
  14. VALGANCICLOVIR/VALGANCICLOVIR HYDROCHLORIDE [Concomitant]
     Active Substance: VALGANCICLOVIR
     Dosage: Q48HRS
  15. VORICONAZOLE. [Concomitant]
     Active Substance: VORICONAZOLE
     Dosage: BID
     Dates: end: 20161108
  16. METOPROLOL. [Concomitant]
     Active Substance: METOPROLOL
     Dosage: BID
  17. PREDNISONE. [Concomitant]
     Active Substance: PREDNISONE
     Indication: IMMUNOSUPPRESSION
     Dates: start: 20140715
  18. PANCRELIPASE. [Concomitant]
     Active Substance: PANCRELIPASE
  19. FOLIC ACID. [Concomitant]
     Active Substance: FOLIC ACID
  20. IMMUNOGLOBULIN HUMAN NORMAL [Concomitant]
     Active Substance: HUMAN IMMUNOGLOBULIN G
     Indication: LUNG TRANSPLANT REJECTION
  21. DILTIAZEM. [Concomitant]
     Active Substance: DILTIAZEM

REACTIONS (1)
  - Toxic optic neuropathy [Recovered/Resolved]

NARRATIVE: CASE EVENT DATE: 2016
